FAERS Safety Report 10203334 (Version 2)
Quarter: 2014Q2

REPORT INFORMATION
  Report Type: Report from Study
  Country: MX (occurrence: MX)
  Receive Date: 20140529
  Receipt Date: 20140529
  Transmission Date: 20141212
  Serious: Yes (Death, Hospitalization, Other)
  Sender: FDA-Public Use
  Company Number: PHHY2013MX107110

PATIENT
  Age: 82 Year
  Sex: Male

DRUGS (5)
  1. ONBREZ [Suspect]
     Indication: ASTHMA
     Dosage: 150 UG, QD
     Route: 055
     Dates: start: 20121110, end: 201306
  2. ONBREZ [Suspect]
     Indication: OFF LABEL USE
  3. COMBIVENT [Concomitant]
     Indication: ASTHMA
     Dosage: UNK UKN, UNK
  4. COMBIVENT [Concomitant]
     Dosage: UNK
  5. SERETIDE [Concomitant]
     Dosage: UNK UKN, UNK
     Dates: start: 201306

REACTIONS (3)
  - Prostate cancer [Fatal]
  - Prostate cancer recurrent [Fatal]
  - Urinary tract obstruction [Unknown]
